FAERS Safety Report 5262509-0 (Version None)
Quarter: 2007Q1

REPORT INFORMATION
  Report Type: 
  Country: None (occurrence: None)
  Receive Date: 20070312
  Receipt Date: 20070305
  Transmission Date: 20070707
  Serious: Yes (Other)
  Sender: FDA-Public Use
  Company Number: ES-AVENTIS-200710601GDDC

PATIENT
  Sex: Male

DRUGS (4)
  1. ARAVA [Suspect]
     Dosage: DOSE: UNK
  2. ARAVA [Suspect]
     Dosage: DOSE: UNK
  3. ENBREL [Concomitant]
     Dosage: DOSE: UNK
  4. ENBREL [Concomitant]
     Dosage: DOSE: UNK

REACTIONS (3)
  - DYSURIA [None]
  - PENILE PAIN [None]
  - PENIS DISORDER [None]
